FAERS Safety Report 12955593 (Version 1)
Quarter: 2016Q4

REPORT INFORMATION
  Report Type: Spontaneous
  Country: CH (occurrence: CH)
  Receive Date: 20161118
  Receipt Date: 20161118
  Transmission Date: 20170207
  Serious: Yes (Hospitalization, Other)
  Sender: FDA-Public Use
  Company Number: CH-PFIZER INC-2016520553

PATIENT
  Age: 69 Year
  Sex: Female

DRUGS (24)
  1. GLIVEC [Suspect]
     Active Substance: IMATINIB MESYLATE
     Indication: ACUTE LEUKAEMIA
     Dosage: 800 MG, DAILY
     Route: 048
     Dates: start: 20160929, end: 20161020
  2. GLIVEC [Suspect]
     Active Substance: IMATINIB MESYLATE
     Dosage: 400 MG, DAILY
     Dates: start: 20161024, end: 20161025
  3. DEXAMETHASON [Concomitant]
     Active Substance: DEXAMETHASONE
     Dosage: 40 MG, 2X/WEEK
     Route: 048
     Dates: start: 20160929, end: 20161021
  4. VINCRISTIN [Concomitant]
     Active Substance: VINCRISTINE
     Dosage: 2 MG, WEEKLY
     Route: 042
     Dates: start: 20160929, end: 20161006
  5. BACTRIM [Concomitant]
     Active Substance: SULFAMETHOXAZOLE\TRIMETHOPRIM
     Indication: INFECTION PROPHYLAXIS
     Dosage: 25 MG, 1X/DAY
  6. CYTOSAR [Suspect]
     Active Substance: CYTARABINE
     Indication: ACUTE LEUKAEMIA
     Dosage: 30 MG, WEEKLY
     Route: 037
     Dates: start: 20161005, end: 20161012
  7. SPIRICORT [Concomitant]
     Active Substance: PREDNISOLONE
     Dosage: 100 MG, 1X/DAY
     Dates: start: 20160924, end: 20160928
  8. ATORVASTATIN PFIZER [Concomitant]
     Active Substance: ATORVASTATIN
     Dosage: 20 MG, 1X/DAY
  9. NOVALGIN [Concomitant]
     Active Substance: METAMIZOLE SODIUM
     Dosage: 500 MG, UNK
  10. SOLU-MEDROL [Concomitant]
     Active Substance: METHYLPREDNISOLONE SODIUM SUCCINATE
     Dosage: 125 MG, WEEKLY
     Dates: start: 20160930, end: 20161014
  11. MABTHERA [Concomitant]
     Active Substance: RITUXIMAB
     Dosage: 650 MG, WEEKLY
     Dates: start: 20160930
  12. BELOC-ZOK COMP [Concomitant]
     Active Substance: HYDROCHLOROTHIAZIDE\METOPROLOL SUCCINATE
     Dosage: 25 MG, 1X/DAY
  13. ZYLORIC [Concomitant]
     Active Substance: ALLOPURINOL
     Dosage: 300 MG, 1X/DAY
     Dates: start: 20160924, end: 20160928
  14. TAVEGYL [Concomitant]
     Active Substance: CLEMASTINE FUMARATE
     Dosage: 4 MG, WEEKLY
     Dates: start: 20160930, end: 20161014
  15. PRIMPERAN [Concomitant]
     Active Substance: METOCLOPRAMIDE HYDROCHLORIDE
     Dosage: 10 MG, UNK
     Route: 048
  16. METHOTREXATE SODIUM. [Suspect]
     Active Substance: METHOTREXATE SODIUM
     Indication: ACUTE LEUKAEMIA
     Dosage: 15 MG, WEEKLY
     Route: 037
     Dates: start: 20161005, end: 20161012
  17. SOLU-MEDROL [Concomitant]
     Active Substance: METHYLPREDNISOLONE SODIUM SUCCINATE
     Dosage: 125 MG, 1X/DAY
     Dates: start: 20160922, end: 20160923
  18. ACIDUM FOLICUM STREULI [Concomitant]
     Dosage: 5 MG, UNK
     Dates: start: 20161017, end: 20161019
  19. SOLU-MEDROL [Suspect]
     Active Substance: METHYLPREDNISOLONE SODIUM SUCCINATE
     Indication: ACUTE LEUKAEMIA
     Dosage: 40 MG, WEEKLY
     Route: 037
     Dates: start: 20161005, end: 20161012
  20. NEXIUM [Concomitant]
     Active Substance: ESOMEPRAZOLE MAGNESIUM
     Dosage: 40 MG, 1X/DAY
     Dates: start: 20160924
  21. DAFALGAN [Concomitant]
     Active Substance: ACETAMINOPHEN
     Dosage: 1 G, UNK
     Dates: start: 20160929, end: 20161003
  22. TEMESTA [Concomitant]
     Active Substance: LORAZEPAM
     Dosage: 1 DF, UNK
  23. FASTURTEC [Concomitant]
     Active Substance: RASBURICASE
     Dosage: 7.5 MG, 1X/DAY
     Dates: start: 20160922
  24. VALTREX [Concomitant]
     Active Substance: VALACYCLOVIR HYDROCHLORIDE
     Indication: INFECTION PROPHYLAXIS
     Dosage: 500 MG, 2X/DAY

REACTIONS (7)
  - Fatigue [Unknown]
  - Hyponatraemia [Recovered/Resolved]
  - Apathy [Unknown]
  - Moaning [Unknown]
  - Personality change [Unknown]
  - Inappropriate antidiuretic hormone secretion [Recovered/Resolved]
  - Depression [Unknown]

NARRATIVE: CASE EVENT DATE: 20161016
